FAERS Safety Report 4718826-3 (Version None)
Quarter: 2005Q3

REPORT INFORMATION
  Report Type: 
  Country: None (occurrence: None)
  Receive Date: 20050719
  Receipt Date: 20050705
  Transmission Date: 20060218
  Serious: Yes (Hospitalization)
  Sender: FDA-Public Use
  Company Number: 2005100265

PATIENT
  Sex: Male

DRUGS (5)
  1. CELEBREX [Suspect]
     Indication: ILL-DEFINED DISORDER
     Dosage: 200 MG
  2. LIPITOR [Suspect]
     Indication: HYPERCHOLESTEROLAEMIA
  3. PRILOSEC [Concomitant]
  4. ASPIRIN [Concomitant]
  5. SYNTHROID [Concomitant]

REACTIONS (2)
  - MYALGIA [None]
  - MYOCARDIAL INFARCTION [None]
